FAERS Safety Report 5290928-5 (Version None)
Quarter: 2007Q2

REPORT INFORMATION
  Report Type: 
  Country: None (occurrence: None)
  Receive Date: 20070409
  Receipt Date: 20070327
  Transmission Date: 20071010
  Serious: Yes (Other)
  Sender: FDA-Public Use
  Company Number: GB-NOVOPROD-262219

PATIENT
  Age: 11 Year
  Sex: Male
  Weight: 60 kg

DRUGS (3)
  1. LEVEMIR [Suspect]
     Indication: DIABETES MELLITUS INSULIN-DEPENDENT
     Dosage: 18 IU, QD
     Route: 058
     Dates: start: 20061111, end: 20061121
  2. NOVOMIX 30 [Concomitant]
     Indication: DIABETES MELLITUS INSULIN-DEPENDENT
     Dosage: 32 IU, QD
     Route: 058
     Dates: start: 20061111
  3. NOVORAPID [Concomitant]
     Indication: DIABETES MELLITUS INSULIN-DEPENDENT
     Dosage: 9 IU, QD
     Route: 058
     Dates: start: 20061111, end: 20061121

REACTIONS (3)
  - BLOOD GLUCOSE INCREASED [None]
  - INJECTION SITE MASS [None]
  - WEIGHT DECREASED [None]
